FAERS Safety Report 11691473 (Version 1)
Quarter: 2015Q4

REPORT INFORMATION
  Report Type: Spontaneous
  Country: DK (occurrence: DK)
  Receive Date: 20151102
  Receipt Date: 20151102
  Transmission Date: 20160304
  Serious: Yes (Hospitalization)
  Sender: FDA-Public Use
  Company Number: PHHY2015DK138525

PATIENT
  Age: 50 Year
  Sex: Male

DRUGS (4)
  1. MAGNYL                             /00228701/ [Concomitant]
     Indication: PRODUCT USED FOR UNKNOWN INDICATION
     Route: 065
  2. PLAVIX [Concomitant]
     Active Substance: CLOPIDOGREL BISULFATE
     Indication: PRODUCT USED FOR UNKNOWN INDICATION
     Route: 065
  3. METOPROLOL TARTRATE. [Concomitant]
     Active Substance: METOPROLOL TARTRATE
     Indication: PRODUCT USED FOR UNKNOWN INDICATION
     Route: 065
  4. SIMVASTATIN SANDOZ [Suspect]
     Active Substance: SIMVASTATIN
     Indication: HYPERCHOLESTEROLAEMIA
     Dosage: 40 MG, STYRKE
     Route: 048
     Dates: start: 201001, end: 201312

REACTIONS (26)
  - Hypoacusis [Unknown]
  - Cholecystectomy [Recovered/Resolved]
  - Weight decreased [Unknown]
  - Pancreatitis [Unknown]
  - Dizziness [Unknown]
  - Nausea [Unknown]
  - Heart rate decreased [Unknown]
  - Palpitations [Unknown]
  - Joint range of motion decreased [Unknown]
  - Gallbladder disorder [Recovered/Resolved]
  - Arthralgia [Unknown]
  - Blister [Unknown]
  - Vomiting [Unknown]
  - Gallbladder polyp [Recovered/Resolved]
  - Loss of libido [Unknown]
  - Memory impairment [Unknown]
  - Abdominal pain [Unknown]
  - Myalgia [Unknown]
  - Gynaecomastia [Unknown]
  - Cholelithiasis [Recovered/Resolved]
  - Night sweats [Unknown]
  - Anxiety [Unknown]
  - Staphylococcal infection [Recovered/Resolved]
  - Decreased appetite [Unknown]
  - Depression [Unknown]
  - Depressed mood [Unknown]

NARRATIVE: CASE EVENT DATE: 201201
